FAERS Safety Report 6672651-5 (Version None)
Quarter: 2010Q2

REPORT INFORMATION
  Report Type: 
  Country: None (occurrence: None)
  Receive Date: 20100408
  Receipt Date: 20100331
  Transmission Date: 20101027
  Serious: Yes (Death)
  Sender: FDA-Public Use
  Company Number: JP-ROCHE-639803

PATIENT
  Sex: Male

DRUGS (10)
  1. CELLCEPT [Suspect]
     Indication: PROPHYLAXIS AGAINST TRANSPLANT REJECTION
     Route: 048
     Dates: start: 20061029, end: 20061217
  2. CELLCEPT [Suspect]
     Route: 048
     Dates: start: 20061218, end: 20070315
  3. CELLCEPT [Suspect]
     Route: 048
     Dates: start: 20070330, end: 20070630
  4. TACROLIMUS HYDRATE [Concomitant]
     Route: 048
     Dates: start: 20061029, end: 20061217
  5. TACROLIMUS HYDRATE [Concomitant]
     Route: 048
     Dates: start: 20061217, end: 20070219
  6. TACROLIMUS HYDRATE [Concomitant]
     Route: 048
     Dates: start: 20070219, end: 20070315
  7. TACROLIMUS HYDRATE [Concomitant]
     Route: 048
     Dates: start: 20070315, end: 20070419
  8. TACROLIMUS HYDRATE [Concomitant]
     Route: 048
     Dates: start: 20070419, end: 20070421
  9. TACROLIMUS HYDRATE [Concomitant]
     Route: 048
     Dates: start: 20070421, end: 20070511
  10. PREDONINE [Concomitant]
     Route: 048
     Dates: start: 20061029, end: 20070602

REACTIONS (4)
  - ACUTE RESPIRATORY FAILURE [None]
  - EMBOLISM [None]
  - T-CELL LYMPHOMA RECURRENT [None]
  - WHITE BLOOD CELL COUNT DECREASED [None]
